FAERS Safety Report 8790129 (Version 2)
Quarter: 2013Q4

REPORT INFORMATION
  Report Type: Spontaneous
  Country: US (occurrence: US)
  Receive Date: 20120917
  Receipt Date: 20131101
  Transmission Date: 20140711
  Serious: No
  Sender: FDA-Public Use
  Company Number: US-009507513-1209USA004236

PATIENT
  Sex: Male

DRUGS (3)
  1. CLARITIN-D-12 [Suspect]
     Indication: RESPIRATORY TRACT CONGESTION
     Dosage: UNK, UNKNOWN
     Route: 048
     Dates: start: 201208
  2. CLARITIN-D-12 [Suspect]
     Indication: SNEEZING
  3. CLARITIN-D-12 [Suspect]
     Indication: RHINORRHOEA

REACTIONS (1)
  - Drug ineffective [Not Recovered/Not Resolved]
